FAERS Safety Report 6108985-2 (Version None)
Quarter: 2009Q1

REPORT INFORMATION
  Report Type: 
  Country: None (occurrence: None)
  Receive Date: 20090310
  Receipt Date: 20090224
  Transmission Date: 20090719
  Serious: Yes (Hospitalization, Other)
  Sender: FDA-Public Use
  Company Number: US-ELI_LILLY_AND_COMPANY-US200902006652

PATIENT
  Sex: Female

DRUGS (6)
  1. FORTEO [Suspect]
  2. CARVEDILOL [Concomitant]
     Dosage: UNK, 2/D
  3. ENALAPRIL MALEATE [Concomitant]
     Dosage: UNK, DAILY (1/D)
  4. OSCAL [Concomitant]
  5. CALCITRIOL [Concomitant]
     Dosage: UNK, DAILY (1/D)
  6. ASPIRIN [Concomitant]
     Dosage: UNK, DAILY (1/D)

REACTIONS (2)
  - AORTIC ANEURYSM [None]
  - BACK PAIN [None]
